FAERS Safety Report 10240174 (Version 1)
Quarter: 2014Q2

REPORT INFORMATION
  Report Type: Spontaneous
  Country: VE (occurrence: VE)
  Receive Date: 20140617
  Receipt Date: 20140617
  Transmission Date: 20141212
  Serious: Yes (Other)
  Sender: FDA-Public Use
  Company Number: VE-UCBSA-2014001783

PATIENT
  Age: 68 Year
  Sex: Female

DRUGS (1)
  1. NEUPRO [Suspect]
     Indication: PARKINSON^S DISEASE
     Dosage: 6MG DAILY
     Route: 062
     Dates: start: 20140104, end: 20140206

REACTIONS (2)
  - Vision blurred [Unknown]
  - Pruritus [Unknown]
